FAERS Safety Report 5324045-2 (Version None)
Quarter: 2007Q2

REPORT INFORMATION
  Report Type: 
  Country: None (occurrence: None)
  Receive Date: 20070514
  Receipt Date: 20070508
  Transmission Date: 20071010
  Serious: Yes (Other)
  Sender: FDA-Public Use
  Company Number: CA-AMGEN-US211834

PATIENT
  Sex: Male

DRUGS (5)
  1. PANITUMUMAB [Suspect]
     Indication: COLORECTAL CANCER
     Route: 042
     Dates: start: 20070207
  2. FLUOROURACIL [Suspect]
     Route: 042
     Dates: start: 20070207
  3. OXALIPLATIN [Suspect]
     Route: 042
     Dates: start: 20070207
  4. LEUCOVORIN CALCIUM [Concomitant]
     Route: 042
     Dates: start: 20070207
  5. COUMADIN [Concomitant]
     Route: 048
     Dates: start: 20040101

REACTIONS (1)
  - ATRIAL FIBRILLATION [None]
